FAERS Safety Report 5372123-4 (Version None)
Quarter: 2007Q2

REPORT INFORMATION
  Report Type: 
  Country: None (occurrence: None)
  Receive Date: 20070615
  Receipt Date: 20070214
  Transmission Date: 20071010
  Serious: Yes (Other)
  Sender: FDA-Public Use
  Company Number: 200620236US

PATIENT
  Age: 48 Year
  Sex: Female
  Weight: 60.5 kg

DRUGS (7)
  1. LANTUS [Suspect]
     Indication: DIABETES MELLITUS INSULIN-DEPENDENT
     Dosage: 14 U HS
     Dates: end: 20061218
  2. LANTUS [Suspect]
     Indication: DIABETES MELLITUS INSULIN-DEPENDENT
     Dosage: 8 U HS
     Dates: start: 20061219
  3. LANTUS [Suspect]
     Indication: DIABETES MELLITUS INSULIN-DEPENDENT
     Dosage: 10 U HS
     Dates: start: 20061221
  4. HUMALOG [Concomitant]
  5. ATORVASTATIN CALCIUM              (LIPITOR) [Concomitant]
  6. COLECALCIFEROL, CALCIUM CARBONATE         (CALCIUM 600 + D) [Concomitant]
  7. VITAMINS NOS, MINERALS NOS       (CENTRUM) [Concomitant]

REACTIONS (4)
  - BLOOD GLUCOSE INCREASED [None]
  - DRUG INEFFECTIVE [None]
  - DYSPNOEA [None]
  - HYPOGLYCAEMIA [None]
